FAERS Safety Report 8609914-X (Version None)
Quarter: 2012Q3

REPORT INFORMATION
  Report Type: 
  Country: None (occurrence: None)
  Receive Date: 20120821
  Receipt Date: 20120814
  Transmission Date: 20120928
  Serious: Yes (Hospitalization, Other)
  Sender: FDA-Public Use
  Company Number: US-ROCHE-494043

PATIENT
  Sex: Female
  Weight: 65.8 kg

DRUGS (11)
  1. PREDNISONE TAB [Concomitant]
     Indication: COLITIS ULCERATIVE
     Route: 048
  2. ASACOL [Concomitant]
     Indication: COLITIS ULCERATIVE
     Route: 048
  3. DOXYCYCLINE HCL [Concomitant]
  4. MINOCYCLINE HCL [Concomitant]
  5. TOPICORT [Concomitant]
     Route: 061
  6. RETIN-A [Concomitant]
  7. ACCUTANE [Suspect]
     Indication: ACNE CYSTIC
     Route: 048
     Dates: start: 19880101, end: 19880101
  8. CORTISPORIN [Concomitant]
     Indication: OTITIS EXTERNA
     Route: 001
  9. AMOXICILLIN [Concomitant]
  10. ACCUTANE [Suspect]
     Route: 048
     Dates: start: 19930419, end: 19930830
  11. ACCUTANE [Suspect]
     Route: 048
     Dates: start: 19920601, end: 19921001

REACTIONS (26)
  - STRESS [None]
  - INFERTILITY [None]
  - FOOT FRACTURE [None]
  - CONJUNCTIVITIS BACTERIAL [None]
  - LOWER LIMB FRACTURE [None]
  - HYPERTENSION [None]
  - INFLAMMATORY BOWEL DISEASE [None]
  - FACIAL BONES FRACTURE [None]
  - POUCHITIS [None]
  - FALL [None]
  - PANIC ATTACK [None]
  - INSOMNIA [None]
  - DEPRESSION [None]
  - ANXIETY [None]
  - LIPOMA [None]
  - ANGIOPATHY [None]
  - FEELING OF DESPAIR [None]
  - VERTIGO [None]
  - BETA HAEMOLYTIC STREPTOCOCCAL INFECTION [None]
  - COLITIS [None]
  - ANAEMIA [None]
  - SOCIAL FEAR [None]
  - AFFECTIVE DISORDER [None]
  - COLITIS ULCERATIVE [None]
  - OTITIS EXTERNA [None]
  - ERYTHEMA [None]
